FAERS Safety Report 14959383 (Version 1)
Quarter: 2018Q2

REPORT INFORMATION
  Report Type: Spontaneous
  Country: US (occurrence: US)
  Receive Date: 20180510
  Receipt Date: 20180510
  Transmission Date: 20180711
  Serious: Yes (Disabling)
  Sender: FDA-Public Use
  Company Number: None

PATIENT
  Age: 48 Year
  Sex: Female
  Weight: 69.75 kg

DRUGS (1)
  1. DULOXETINE. [Suspect]
     Active Substance: DULOXETINE
     Indication: DEPRESSION
     Dates: start: 20170301, end: 20180414

REACTIONS (8)
  - Suicidal ideation [None]
  - Quality of life decreased [None]
  - Anxiety [None]
  - Anhedonia [None]
  - Withdrawal syndrome [None]
  - Pain [None]
  - Bedridden [None]
  - Poisoning [None]

NARRATIVE: CASE EVENT DATE: 20180414
